FAERS Safety Report 7918738-8 (Version None)
Quarter: 2011Q4

REPORT INFORMATION
  Report Type: 
  Country: None (occurrence: None)
  Receive Date: 20111114
  Receipt Date: 20111109
  Transmission Date: 20120403
  Serious: No
  Sender: FDA-Public Use
  Company Number: 2011-01309

PATIENT
  Age: 52 Year
  Sex: Female
  Weight: 68.9467 kg

DRUGS (1)
  1. ZICAM ALLERGY RELIEF NASAL GEL [Suspect]
     Indication: SEASONAL ALLERGY
     Dosage: APPLICATION TWICE DAILY
     Dates: start: 20111019, end: 20111102

REACTIONS (1)
  - ANOSMIA [None]
